FAERS Safety Report 14841692 (Version 3)
Quarter: 2018Q2

REPORT INFORMATION
  Report Type: Report from Study
  Country: US (occurrence: US)
  Receive Date: 20180503
  Receipt Date: 20180606
  Transmission Date: 20180711
  Serious: Yes (Other)
  Sender: FDA-Public Use
  Company Number: US-ASTRAZENECA-2018SE44515

PATIENT
  Age: 20409 Day
  Sex: Female

DRUGS (3)
  1. TAGRISSO [Suspect]
     Active Substance: OSIMERTINIB
     Indication: BONE CANCER
     Route: 048
     Dates: start: 20180328
  2. TAGRISSO [Suspect]
     Active Substance: OSIMERTINIB
     Indication: LUNG CARCINOMA CELL TYPE UNSPECIFIED STAGE 0
     Route: 048
     Dates: start: 20180328
  3. TAGRISSO [Suspect]
     Active Substance: OSIMERTINIB
     Indication: LUNG CARCINOMA CELL TYPE UNSPECIFIED STAGE 0
     Route: 048
     Dates: start: 20180328

REACTIONS (6)
  - Pruritus [Unknown]
  - Inflammation [Unknown]
  - Diarrhoea [Unknown]
  - Nausea [Unknown]
  - Skin erosion [Unknown]
  - Rash [Unknown]

NARRATIVE: CASE EVENT DATE: 20180501
